FAERS Safety Report 25191717 (Version 1)
Quarter: 2025Q2

REPORT INFORMATION
  Report Type: Spontaneous
  Country: US (occurrence: None)
  Receive Date: 20250411
  Receipt Date: 20250411
  Transmission Date: 20250717
  Serious: No
  Sender: FDA-CTU
  Company Number: None

PATIENT

DRUGS (1)
  1. TIRZEPATIDE [Suspect]
     Active Substance: TIRZEPATIDE

REACTIONS (4)
  - Intercepted product selection error [None]
  - Product dosage form issue [None]
  - Product advertising issue [None]
  - Product label issue [None]
